FAERS Safety Report 4870969-X (Version None)
Quarter: 2005Q4

REPORT INFORMATION
  Report Type: 
  Country: None (occurrence: None)
  Receive Date: 20051229
  Receipt Date: 20051208
  Transmission Date: 20060501
  Serious: Yes (Hospitalization, Other)
  Sender: FDA-Public Use
  Company Number: GR200512001310

PATIENT
  Age: 78 Year
  Sex: Female
  Weight: 63 kg

DRUGS (17)
  1. FORTEO [Suspect]
     Dosage: 20 UG/DAY, DAILY (1/D), SUBCUTANEOUS
     Route: 058
     Dates: start: 20040913, end: 20050917
  2. FORTEO PEN (250MCG/ML) (FORTEO PEN 250MCG/ML (3ML)) [Concomitant]
  3. BIOFENAC TABLET ^ACHE^ (DICLOFENAC SODIUM) [Concomitant]
  4. LIPITOR [Concomitant]
  5. DAFLON 500 (DIOSMIN, HESPERIDIN) [Concomitant]
  6. DAONIL (GLIBENCLAMIDE) [Concomitant]
  7. HUMULIN (INSULIN HUMAN, INSULIN ISOPHANE, HUMAN BIOSYNTHETIC) [Concomitant]
  8. LASIX (FUROSEMIDE, FUROSEMIDE SODIUM) [Concomitant]
  9. NORVASC [Concomitant]
  10. ENALAPRIL MALEATE [Concomitant]
  11. ALDACTONE [Concomitant]
  12. LEXOTANIL (BROMAZEPAM) [Concomitant]
  13. GLUCOSAMINE (GLUCOSAMINE) [Concomitant]
  14. PROBITOR (GABEXATE MESILATE) [Concomitant]
  15. ALPHA D3 (ALFACALCIDOL) [Concomitant]
  16. GLUCOPHAGE [Concomitant]
  17. CARVEDILOL [Concomitant]

REACTIONS (6)
  - ANOREXIA [None]
  - BLOOD GLUCOSE INCREASED [None]
  - FATIGUE [None]
  - MALAISE [None]
  - PULMONARY OEDEMA [None]
  - RENAL FAILURE [None]
